FAERS Safety Report 4538990-9 (Version None)
Quarter: 2004Q4

REPORT INFORMATION
  Report Type: 
  Country: None (occurrence: None)
  Receive Date: 20041222
  Receipt Date: 20041206
  Transmission Date: 20050328
  Serious: Yes (Hospitalization)
  Sender: FDA-Public Use
  Company Number: USA040362774

PATIENT
  Age: 71 Year
  Sex: Female
  Weight: 55 kg

DRUGS (8)
  1. FORTEO [Suspect]
     Indication: OSTEOPOROSIS
     Dosage: 20 UG DAY
     Dates: start: 20040305, end: 20041104
  2. CALCIUM [Concomitant]
  3. VITAMIN E [Concomitant]
  4. CENTURY SENIOR [Concomitant]
  5. CRANBERRY [Concomitant]
  6. TYLENOL [Concomitant]
  7. ADVIL [Concomitant]
  8. KEFLEX [Concomitant]

REACTIONS (17)
  - BACK PAIN [None]
  - BLOOD CALCIUM INCREASED [None]
  - CONDITION AGGRAVATED [None]
  - CONTUSION [None]
  - HAEMORRHAGE [None]
  - HYPERTENSION [None]
  - INCREASED UPPER AIRWAY SECRETION [None]
  - INJECTION SITE DISCOMFORT [None]
  - INJECTION SITE ERYTHEMA [None]
  - INJECTION SITE HAEMORRHAGE [None]
  - INJECTION SITE STINGING [None]
  - NEPHROLITHIASIS [None]
  - OEDEMA PERIPHERAL [None]
  - PAIN IN EXTREMITY [None]
  - PHARMACEUTICAL PRODUCT COMPLAINT [None]
  - TREMOR [None]
  - WEIGHT DECREASED [None]
